FAERS Safety Report 15893926 (Version 1)
Quarter: 2019Q1

REPORT INFORMATION
  Report Type: Spontaneous
  Country: US (occurrence: US)
  Receive Date: 20190130
  Receipt Date: 20190130
  Transmission Date: 20190417
  Serious: Yes (Disabling)
  Sender: FDA-Public Use
  Company Number: None

PATIENT
  Sex: Male
  Weight: 85.5 kg

DRUGS (2)
  1. ADVAIR DISKUS [Suspect]
     Active Substance: FLUTICASONE PROPIONATE\SALMETEROL XINAFOATE
     Indication: CHRONIC OBSTRUCTIVE PULMONARY DISEASE
     Dosage: ?          OTHER STRENGTH:1 PUFF TWICE A DAY;QUANTITY:1 PUFF(S);?
     Route: 055
     Dates: start: 20181114, end: 20190124
  2. ADVAIR DISKUS [Suspect]
     Active Substance: FLUTICASONE PROPIONATE\SALMETEROL XINAFOATE
     Indication: ASTHMA
     Dosage: ?          OTHER STRENGTH:1 PUFF TWICE A DAY;QUANTITY:1 PUFF(S);?
     Route: 055
     Dates: start: 20181114, end: 20190124

REACTIONS (2)
  - Arthritis [None]
  - Osteoarthritis [None]
